FAERS Safety Report 5819736-0 (Version None)
Quarter: 2008Q3

REPORT INFORMATION
  Report Type: 
  Country: None (occurrence: None)
  Receive Date: 20080723
  Receipt Date: 20080711
  Transmission Date: 20090109
  Serious: Yes (Other)
  Sender: FDA-Public Use
  Company Number: US-PFIZER INC-2008058057

PATIENT
  Sex: Female
  Weight: 74.8 kg

DRUGS (4)
  1. ZOLOFT [Suspect]
     Indication: MENOPAUSAL SYMPTOMS
     Dates: start: 20040101, end: 20080630
  2. ZOLOFT [Suspect]
     Indication: ANXIETY
  3. SYNTHROID [Concomitant]
  4. XANAX [Concomitant]

REACTIONS (3)
  - ACTIVITIES OF DAILY LIVING IMPAIRED [None]
  - DISTURBANCE IN ATTENTION [None]
  - NERVOUS SYSTEM DISORDER [None]
